FAERS Safety Report 18509520 (Version 1)
Quarter: 2020Q4

REPORT INFORMATION
  Report Type: Spontaneous
  Country: US (occurrence: US)
  Receive Date: 20201117
  Receipt Date: 20201117
  Transmission Date: 20210114
  Serious: No
  Sender: FDA-Public Use
  Company Number: US-TEVA-2020-US-1849129

PATIENT
  Age: 65 Year
  Sex: Female

DRUGS (1)
  1. DIAZEPAM TEVA [Suspect]
     Active Substance: DIAZEPAM
     Route: 065
     Dates: start: 20201106

REACTIONS (3)
  - Head discomfort [Unknown]
  - Migraine [Unknown]
  - Nightmare [Unknown]

NARRATIVE: CASE EVENT DATE: 20201109
